FAERS Safety Report 4597884-3 (Version None)
Quarter: 2005Q1

REPORT INFORMATION
  Report Type: 
  Country: None (occurrence: None)
  Receive Date: 20050301
  Receipt Date: 20050121
  Transmission Date: 20050727
  Serious: Yes (Other)
  Sender: FDA-Public Use
  Company Number: VESR0220050001

PATIENT
  Age: 63 Year
  Sex: Female
  Weight: 113.3993 kg

DRUGS (6)
  1. VERAPAMIL HCL [Suspect]
     Indication: HYPERTENSION
     Dosage: 360MG, 1 AT BEDTIME, ORAL
     Route: 048
     Dates: start: 20040101, end: 20040601
  2. VERAPAMIL [Suspect]
     Indication: HYPERTENSION
     Dosage: 180 MG, 2 AT BEDTIME, ORAL
     Route: 048
     Dates: start: 20040601, end: 20041101
  3. SINGULAIR [Concomitant]
  4. ADVAIR DISKUS 100/50 [Concomitant]
  5. FOSAMAX [Concomitant]
  6. COZAAR [Concomitant]

REACTIONS (1)
  - GINGIVAL BLEEDING [None]
